FAERS Safety Report 23531452 (Version 1)
Quarter: 2024Q1

REPORT INFORMATION
  Report Type: Spontaneous
  Country: US (occurrence: None)
  Receive Date: 20240215
  Receipt Date: 20240215
  Transmission Date: 20240410
  Serious: No
  Sender: FDA-Public Use
  Company Number: None

PATIENT
  Sex: 0

DRUGS (1)
  1. MUPIROCIN [Suspect]
     Active Substance: MUPIROCIN

REACTIONS (2)
  - Skin irritation [None]
  - Complication associated with device [None]
